FAERS Safety Report 19934721 (Version 1)
Quarter: 2021Q4

REPORT INFORMATION
  Report Type: Spontaneous
  Country: PT (occurrence: PT)
  Receive Date: 20211008
  Receipt Date: 20211008
  Transmission Date: 20220303
  Serious: Yes (Other)
  Sender: FDA-Public Use
  Company Number: PT-PURDUE-USA-2021-0285677

PATIENT
  Age: 69 Year
  Sex: Female
  Weight: 55 kg

DRUGS (1)
  1. LIDOCAINE [Suspect]
     Active Substance: LIDOCAINE
     Indication: Local anaesthesia
     Dosage: 80 ML, UNK [2% SOL.]
     Route: 042

REACTIONS (3)
  - Altered state of consciousness [Unknown]
  - Local anaesthetic systemic toxicity [Unknown]
  - Incorrect dose administered [Unknown]
